FAERS Safety Report 21672418 (Version 1)
Quarter: 2022Q4

REPORT INFORMATION
  Report Type: Report from Study
  Country: US (occurrence: US)
  Receive Date: 20221202
  Receipt Date: 20221202
  Transmission Date: 20230113
  Serious: Yes (Death, Other)
  Sender: FDA-Public Use
  Company Number: US-ABBVIE-4220942

PATIENT
  Age: 65 Year
  Sex: Male
  Weight: 87 kg

DRUGS (1)
  1. CREON [Suspect]
     Active Substance: PANCRELIPASE AMYLASE\PANCRELIPASE LIPASE\PANCRELIPASE PROTEASE
     Indication: Pancreatic carcinoma
     Dosage: 3 CAPSULE EACH MEAL AND 3 CAPSULE SNACK?FIRST ADMIN DATE : 17 MAR 2022?FORM STRENGTH: 24000 IU
     Route: 048
     Dates: end: 20221128

REACTIONS (2)
  - Pancreatic carcinoma [Fatal]
  - Hospice care [Unknown]

NARRATIVE: CASE EVENT DATE: 20220301
